FAERS Safety Report 23552216 (Version 3)
Quarter: 2025Q3

REPORT INFORMATION
  Report Type: Report from Study
  Country: CA (occurrence: CA)
  Receive Date: 20240222
  Receipt Date: 20250828
  Transmission Date: 20251021
  Serious: Yes (Other)
  Sender: TEVA
  Company Number: CA-TEVA-VS-3141458

PATIENT
  Age: 73 Year
  Sex: Female

DRUGS (3)
  1. OCTREOTIDE [Suspect]
     Active Substance: OCTREOTIDE
     Indication: Carcinoid tumour
     Route: 030
     Dates: start: 20220308
  2. OCTREOTIDE [Suspect]
     Active Substance: OCTREOTIDE
     Indication: Carcinoid tumour
     Route: 030
     Dates: start: 20220308
  3. OCTREOTIDE [Suspect]
     Active Substance: OCTREOTIDE
     Indication: Carcinoid tumour
     Route: 030
     Dates: start: 20220308

REACTIONS (7)
  - Depression [Unknown]
  - Arthralgia [Not Recovered/Not Resolved]
  - Sinus congestion [Recovered/Resolved]
  - Ear infection [Unknown]
  - Pain [Unknown]
  - Heart rate irregular [Not Recovered/Not Resolved]
  - Physical examination [Not Recovered/Not Resolved]

NARRATIVE: CASE EVENT DATE: 20231101
